FAERS Safety Report 25767893 (Version 1)
Quarter: 2025Q3

REPORT INFORMATION
  Report Type: Spontaneous
  Country: US (occurrence: None)
  Receive Date: 20250905
  Receipt Date: 20250905
  Transmission Date: 20251021
  Serious: Yes (Other)
  Sender: FDA-CTU
  Company Number: None

PATIENT
  Age: 71 Year
  Sex: Female

DRUGS (1)
  1. TOBI [Suspect]
     Active Substance: TOBRAMYCIN
     Dosage: FREQUENCY : TWICE A DAY;?

REACTIONS (4)
  - Therapy cessation [None]
  - Malaise [None]
  - Dyspnoea [None]
  - Loss of personal independence in daily activities [None]
